FAERS Safety Report 5056978-9 (Version None)
Quarter: 2006Q2

REPORT INFORMATION
  Report Type: 
  Country: None (occurrence: None)
  Receive Date: 20060622
  Receipt Date: 20050921
  Transmission Date: 20061013
  Serious: Yes (Other)
  Sender: FDA-Public Use
  Company Number: US-JNJFOC-20050806019

PATIENT
  Age: 41 Year
  Sex: Male
  Weight: 72.1219 kg

DRUGS (2)
  1. DURAGESIC-100 [Suspect]
     Indication: PAIN
     Dosage: 200 UG/HR, 1 IN 48 HOUR, TRANSDERMAL
     Route: 062
     Dates: start: 20030801
  2. VICODIN [Concomitant]

REACTIONS (5)
  - DECREASED APPETITE [None]
  - HYPERHIDROSIS [None]
  - MUSCLE SPASMS [None]
  - THERAPEUTIC RESPONSE DECREASED [None]
  - WEIGHT DECREASED [None]
